FAERS Safety Report 5624839-X (Version None)
Quarter: 2008Q1

REPORT INFORMATION
  Report Type: 
  Country: None (occurrence: None)
  Receive Date: 20080213
  Receipt Date: 20080208
  Transmission Date: 20080703
  Serious: Yes (Other)
  Sender: FDA-Public Use
  Company Number: US-JNJFOC-20080202313

PATIENT
  Sex: Male

DRUGS (2)
  1. PEPCID AC [Suspect]
  2. PEPCID AC [Suspect]
     Indication: DYSPEPSIA

REACTIONS (2)
  - CHEST PAIN [None]
  - DYSPNOEA [None]
